FAERS Safety Report 17228288 (Version 2)
Quarter: 2020Q1

REPORT INFORMATION
  Report Type: Report from Study
  Country: PT (occurrence: PT)
  Receive Date: 20200103
  Receipt Date: 20200225
  Transmission Date: 20200409
  Serious: Yes (Hospitalization, Other)
  Sender: FDA-Public Use
  Company Number: PT-EMD SERONO-9135168

PATIENT
  Sex: Male

DRUGS (1)
  1. REBIF [Suspect]
     Active Substance: INTERFERON BETA-1A
     Indication: PRODUCT USED FOR UNKNOWN INDICATION
     Route: 058
     Dates: start: 20020101

REACTIONS (6)
  - Bone neoplasm [Unknown]
  - Postoperative thrombosis [Unknown]
  - Subcutaneous abscess [Unknown]
  - Malaise [Unknown]
  - Pyrexia [Unknown]
  - Back pain [Unknown]
